FAERS Safety Report 8862717 (Version 1)
Quarter: 2012Q4

REPORT INFORMATION
  Report Type: 
  Country: US (occurrence: US)
  Receive Date: 20121026
  Receipt Date: 20121026
  Transmission Date: 20130627
  Serious: No
  Sender: FDA-Public Use
  Company Number: US-VERTEX PHARMACEUTICAL INC.-2012-023472

PATIENT
  Sex: Female
  Weight: 48 kg

DRUGS (16)
  1. VX-950 [Suspect]
     Indication: HEPATITIS C
     Dosage: 750 mg, tid
     Route: 048
     Dates: start: 20120524
  2. PEGASYS [Concomitant]
     Indication: HEPATITIS C
     Dosage: 135 ?g, weekly
     Route: 058
     Dates: start: 20120524
  3. RIBASPHERE [Concomitant]
     Indication: HEPATITIS C
     Dosage: UNK
     Route: 048
     Dates: start: 20120524
  4. OMEPRAZOLE [Concomitant]
     Dosage: 20 mg, bid
     Route: 048
  5. NYSTATIN [Concomitant]
     Dosage: 10 ml, tid
     Route: 048
  6. NEURONTIN [Concomitant]
     Dosage: 300 mg, bid
     Route: 048
  7. PAXIL [Concomitant]
     Dosage: 10 mg, qd
  8. CLONAZEPAM [Concomitant]
     Dosage: 0.5 mg, prn
  9. FLOVENT HFA [Concomitant]
     Dosage: 110 ?g, UNK
     Route: 045
  10. ASPIRIN [Concomitant]
     Dosage: 325 mg, prn
  11. SUBOXONE [Concomitant]
     Dosage: UNK, qd
  12. VITAMIN D /00107901/ [Concomitant]
     Dosage: 1000 ut, qd
  13. VITAMIN E                          /00110501/ [Concomitant]
     Dosage: 400 ut, qd
  14. FISH OIL [Concomitant]
     Dosage: 1000 mg, qd
  15. VITAMIN C                          /00008001/ [Concomitant]
     Dosage: 1000 mg, qd
  16. ALBUTEROL                          /00139501/ [Concomitant]
     Dosage: 90 ?g, UNK
     Route: 045

REACTIONS (2)
  - Depression [Unknown]
  - Decreased interest [Unknown]
